FAERS Safety Report 5216661-3 (Version None)
Quarter: 2006Q4

REPORT INFORMATION
  Report Type: 
  Country: None (occurrence: None)
  Receive Date: 20061130
  Receipt Date: 20060815
  Transmission Date: 20070319
  Serious: Yes (Other)
  Sender: FDA-Public Use
  Company Number: US_0510123328

PATIENT
  Age: 35 Year
  Sex: Male
  Weight: 90.9 kg

DRUGS (2)
  1. ZYPREXA [Suspect]
     Indication: SCHIZOPHRENIA
     Dosage: 10 MG
     Dates: start: 19970101
  2. NAVANE [Concomitant]

REACTIONS (5)
  - DIABETES MELLITUS NON-INSULIN-DEPENDENT [None]
  - HYPERGLYCAEMIA [None]
  - POLYDIPSIA [None]
  - WEIGHT DECREASED [None]
  - WEIGHT INCREASED [None]
